FAERS Safety Report 19149968 (Version 14)
Quarter: 2021Q3

REPORT INFORMATION
  Report Type: Report from Study
  Country: US (occurrence: US)
  Receive Date: 20210417
  Receipt Date: 20210927
  Transmission Date: 20211014
  Serious: Yes (Hospitalization, Other)
  Sender: FDA-Public Use
  Company Number: NVSC2021US083345

PATIENT
  Age: 51 Year
  Sex: Female
  Weight: 80.28 kg

DRUGS (7)
  1. TREPROSTINIL. [Suspect]
     Active Substance: TREPROSTINIL
     Dosage: 35(NG/KG/MIN), CONT
     Route: 042
  2. OPSUMIT [Concomitant]
     Active Substance: MACITENTAN
     Indication: PRODUCT USED FOR UNKNOWN INDICATION
     Dosage: UNK
     Route: 065
  3. TREPROSTINIL. [Suspect]
     Active Substance: TREPROSTINIL
     Indication: PULMONARY ARTERIAL HYPERTENSION
     Dosage: 30 (NG/KG/MIN), CONT
     Route: 042
     Dates: start: 20210202
  4. ADEMPAS [Concomitant]
     Active Substance: RIOCIGUAT
     Dosage: 0.5 MG
     Route: 065
  5. ADEMPAS [Concomitant]
     Active Substance: RIOCIGUAT
     Indication: PRODUCT USED FOR UNKNOWN INDICATION
     Dosage: UNK
     Route: 065
  6. TREPROSTINIL. [Suspect]
     Active Substance: TREPROSTINIL
     Dosage: UNK
     Route: 065
  7. TREPROSTINIL. [Suspect]
     Active Substance: TREPROSTINIL
     Dosage: UNK
     Route: 065

REACTIONS (11)
  - Complication associated with device [Unknown]
  - Infection [Unknown]
  - Dyspnoea [Unknown]
  - Fluid retention [Unknown]
  - Nasopharyngitis [Unknown]
  - Hypoxia [Unknown]
  - Lethargy [Unknown]
  - Asthenia [Unknown]
  - Hypoglycaemia [Unknown]
  - Diabetes mellitus [Unknown]
  - Catheter site haemorrhage [Unknown]

NARRATIVE: CASE EVENT DATE: 20210309
